FAERS Safety Report 16459198 (Version 1)
Quarter: 2019Q2

REPORT INFORMATION
  Report Type: Spontaneous
  Country: ES (occurrence: ES)
  Receive Date: 20190620
  Receipt Date: 20190620
  Transmission Date: 20190711
  Serious: Yes (Other)
  Sender: FDA-Public Use
  Company Number: ES-BAYER-2019-116236

PATIENT
  Age: 48 Year
  Sex: Female

DRUGS (11)
  1. RIVAROXABAN [Concomitant]
     Active Substance: RIVAROXABAN
     Dosage: UNK
  2. AMBRISENTAN [Concomitant]
     Active Substance: AMBRISENTAN
  3. ATORVASTATIN [Concomitant]
     Active Substance: ATORVASTATIN
     Dosage: UNK
  4. EPOPROSTENOL. [Concomitant]
     Active Substance: EPOPROSTENOL
     Route: 042
  5. ADEMPAS [Suspect]
     Active Substance: RIOCIGUAT
     Dosage: UNK
     Dates: start: 2018
  6. PAROXETINE. [Concomitant]
     Active Substance: PAROXETINE
     Dosage: UNK
  7. SPIRONOLACTONE. [Concomitant]
     Active Substance: SPIRONOLACTONE
     Dosage: UNK
  8. ILOPROST. [Concomitant]
     Active Substance: ILOPROST
     Route: 055
  9. ALPRAZOLAM. [Concomitant]
     Active Substance: ALPRAZOLAM
     Dosage: UNK
  10. DIAZEPAM. [Concomitant]
     Active Substance: DIAZEPAM
     Dosage: UNK
  11. PREGABALIN. [Concomitant]
     Active Substance: PREGABALIN
     Dosage: UNK

REACTIONS (6)
  - Right ventricular dilatation [None]
  - Oxygen saturation decreased [None]
  - Jugular vein distension [None]
  - Pericardial effusion [None]
  - Oedema [None]
  - Systolic dysfunction [None]
